FAERS Safety Report 25285179 (Version 3)
Quarter: 2025Q2

REPORT INFORMATION
  Report Type: Report from Study
  Country: US (occurrence: US)
  Receive Date: 20250509
  Receipt Date: 20250522
  Transmission Date: 20250716
  Serious: Yes (Hospitalization, Other)
  Sender: ABBVIE
  Company Number: US-ABBVIE-6240936

PATIENT
  Age: 63 Year
  Sex: Male
  Weight: 81.646 kg

DRUGS (3)
  1. CREON [Suspect]
     Active Substance: PANCRELIPASE AMYLASE\PANCRELIPASE LIPASE\PANCRELIPASE PROTEASE
     Indication: Pancreatic failure
     Dosage: THREE CAPSULE PER MEAL. 24000 DOSAGE FORM.
     Route: 048
     Dates: start: 20250428
  2. CREON [Suspect]
     Active Substance: PANCRELIPASE AMYLASE\PANCRELIPASE LIPASE\PANCRELIPASE PROTEASE
     Indication: Pancreatic failure
     Dosage: ONE CAPSULE PER MEAL. 24000 DOSAGE FORM?STOP DATE 2024
     Route: 048
     Dates: start: 202411
  3. CREON [Suspect]
     Active Substance: PANCRELIPASE AMYLASE\PANCRELIPASE LIPASE\PANCRELIPASE PROTEASE
     Indication: Pancreatic failure
     Route: 048
     Dates: start: 202412, end: 202504

REACTIONS (9)
  - Bacteraemia [Recovered/Resolved]
  - Steatorrhoea [Recovered/Resolved]
  - Yellow skin [Recovered/Resolved]
  - Biliary obstruction [Unknown]
  - Pyrexia [Recovered/Resolved]
  - Device dislocation [Recovered/Resolved]
  - Haematochezia [Not Recovered/Not Resolved]
  - Biliary neoplasm [Unknown]
  - Complication associated with device [Recovering/Resolving]

NARRATIVE: CASE EVENT DATE: 20241101
